FAERS Safety Report 5910481-X (Version None)
Quarter: 2008Q4

REPORT INFORMATION
  Report Type: 
  Country: None (occurrence: None)
  Receive Date: 20081007
  Receipt Date: 20080125
  Transmission Date: 20090506
  Serious: Yes (Hospitalization)
  Sender: FDA-Public Use
  Company Number: US-ASTRAZENECA-2008UW01848

PATIENT
  Age: 60 Year
  Sex: Female

DRUGS (7)
  1. ARIMIDEX [Suspect]
     Indication: BREAST CANCER
     Route: 048
     Dates: start: 20060927, end: 20080101
  2. OXYBUTIN [Concomitant]
  3. ELMIRON [Concomitant]
  4. INDERAL LA [Concomitant]
  5. LIPITOR [Concomitant]
  6. AMBIEN [Concomitant]
  7. ATIVAN [Concomitant]

REACTIONS (4)
  - BONE PAIN [None]
  - CARPAL TUNNEL SYNDROME [None]
  - INCISION SITE COMPLICATION [None]
  - INJECTION SITE REACTION [None]
